FAERS Safety Report 9612572 (Version 4)
Quarter: 2014Q1

REPORT INFORMATION
  Report Type: Spontaneous
  Country: JP (occurrence: JP)
  Receive Date: 20131010
  Receipt Date: 20140313
  Transmission Date: 20141002
  Serious: Yes (Death, Hospitalization)
  Sender: FDA-Public Use
  Company Number: PHHY2013JP113213

PATIENT
  Sex: Male

DRUGS (5)
  1. EXJADE [Suspect]
     Indication: IRON OVERLOAD
     Dosage: 1000 MG, DAILY
     Route: 048
  2. DESFERAL [Suspect]
     Indication: IRON OVERLOAD
     Dosage: 1000 MG, DAILY
     Route: 030
  3. DESFERAL [Suspect]
     Dosage: 1000 MG, DAILY
     Route: 030
     Dates: start: 201211
  4. DESFERAL [Suspect]
     Dosage: 1000 MG, DAILY
     Route: 030
     Dates: start: 201302
  5. RED BLOOD CELLS, CONCENTRATED [Concomitant]
     Dosage: BETWEEN 6 AND 9 UNITS/MONTH

REACTIONS (8)
  - Cardiac failure [Fatal]
  - Hypersensitivity [Recovered/Resolved]
  - Cardiomyopathy [Not Recovered/Not Resolved]
  - Atrial fibrillation [Not Recovered/Not Resolved]
  - Sick sinus syndrome [Not Recovered/Not Resolved]
  - Left ventricular dysfunction [Not Recovered/Not Resolved]
  - Serum ferritin increased [Unknown]
  - Drug ineffective [Unknown]
